FAERS Safety Report 25809802 (Version 2)
Quarter: 2025Q4

REPORT INFORMATION
  Report Type: Report from Study
  Country: GB (occurrence: GB)
  Receive Date: 20250916
  Receipt Date: 20251113
  Transmission Date: 20260117
  Serious: No
  Sender: ALEXION PHARMACEUTICALS
  Company Number: GB-ASTRAZENECA-202509GBR009947GB

PATIENT
  Sex: Female

DRUGS (2)
  1. ULTOMIRIS [Suspect]
     Active Substance: RAVULIZUMAB-CWVZ
     Indication: Paroxysmal nocturnal haemoglobinuria
     Dosage: 3300 MILLIGRAM, Q8W
  2. ULTOMIRIS [Suspect]
     Active Substance: RAVULIZUMAB-CWVZ
     Dosage: 3300 MILLIGRAM, Q8W

REACTIONS (7)
  - Postmastectomy lymphoedema syndrome [Not Recovered/Not Resolved]
  - Ocular icterus [Recovered/Resolved]
  - Fatigue [Not Recovered/Not Resolved]
  - Joint stiffness [Recovering/Resolving]
  - Anxiety [Unknown]
  - Malaise [Unknown]
  - Brain fog [Not Recovered/Not Resolved]
